FAERS Safety Report 15989949 (Version 1)
Quarter: 2019Q1

REPORT INFORMATION
  Report Type: Spontaneous
  Country: US (occurrence: US)
  Receive Date: 20190221
  Receipt Date: 20190221
  Transmission Date: 20190418
  Serious: No
  Sender: FDA-Public Use
  Company Number: US-PFIZER INC-2019078890

PATIENT
  Age: 82 Year
  Sex: Female
  Weight: 48.98 kg

DRUGS (1)
  1. IBRANCE [Suspect]
     Active Substance: PALBOCICLIB
     Indication: BREAST CANCER METASTATIC
     Dosage: 125 MG, CYCLIC(D1-21 Q28 DAYS)
     Route: 048
     Dates: start: 20190128

REACTIONS (2)
  - Weight decreased [Unknown]
  - Decreased appetite [Unknown]
